FAERS Safety Report 5315990-2 (Version None)
Quarter: 2007Q2

REPORT INFORMATION
  Report Type: 
  Country: None (occurrence: None)
  Receive Date: 20070503
  Receipt Date: 20070424
  Transmission Date: 20071010
  Serious: Yes (Hospitalization)
  Sender: FDA-Public Use
  Company Number: FR-SANOFI-SYNTHELABO-A02200700985

PATIENT
  Age: 92 Year
  Sex: Female
  Weight: 71 kg

DRUGS (5)
  1. HYPERIUM [Interacting]
     Indication: ESSENTIAL HYPERTENSION
     Route: 048
  2. PLAVIX [Concomitant]
     Dosage: UNK
     Route: 048
  3. VASTEN [Concomitant]
     Route: 048
  4. STILNOX [Suspect]
     Indication: DRUG USE FOR UNKNOWN INDICATION
     Route: 048
  5. CHRONOADALATE [Interacting]
     Route: 048

REACTIONS (4)
  - ACUTE PRERENAL FAILURE [None]
  - DRUG INTERACTION [None]
  - FALL [None]
  - RHABDOMYOLYSIS [None]
